FAERS Safety Report 10246862 (Version 2)
Quarter: 2014Q2

REPORT INFORMATION
  Report Type: Spontaneous
  Country: JP (occurrence: JP)
  Receive Date: 20140619
  Receipt Date: 20140619
  Transmission Date: 20141212
  Serious: Yes (Hospitalization, Other)
  Sender: FDA-Public Use
  Company Number: JP-JNJFOC-20140300770

PATIENT
  Age: 68 Year
  Sex: Male
  Weight: 57 kg

DRUGS (7)
  1. XARELTO [Suspect]
     Indication: THROMBOSIS PROPHYLAXIS
     Route: 048
     Dates: start: 20130928, end: 20140220
  2. CIBENOL [Concomitant]
     Indication: SINUS RHYTHM
     Route: 048
  3. MAINTATE [Concomitant]
     Indication: BRADYCARDIA
     Route: 048
  4. BLOPRESS [Concomitant]
     Indication: HYPERTENSION
     Route: 048
  5. NORVAS [Concomitant]
     Indication: HYPERTENSION
     Route: 048
  6. CRESTOR [Concomitant]
     Indication: DYSLIPIDAEMIA
     Route: 048
  7. TAKEPRON [Concomitant]
     Indication: PROPHYLAXIS AGAINST GASTROINTESTINAL ULCER
     Route: 048

REACTIONS (3)
  - Rectal cancer [Not Recovered/Not Resolved]
  - Tumour haemorrhage [Not Recovered/Not Resolved]
  - Melaena [Recovering/Resolving]
